FAERS Safety Report 13597046 (Version 1)
Quarter: 2017Q2

REPORT INFORMATION
  Report Type: Spontaneous
  Country: US (occurrence: US)
  Receive Date: 20170531
  Receipt Date: 20170531
  Transmission Date: 20170830
  Serious: Yes (Death, Life-Threatening, Disabling, Other)
  Sender: FDA-Public Use
  Company Number: None

PATIENT
  Age: 42 Year
  Sex: Male
  Weight: 88.53 kg

DRUGS (1)
  1. PROPECIA [Suspect]
     Active Substance: FINASTERIDE
     Indication: ANDROGENETIC ALOPECIA
     Route: 048
     Dates: start: 2004, end: 2010

REACTIONS (37)
  - Erectile dysfunction [None]
  - Emotional disorder [None]
  - Anorectal disorder [None]
  - Insomnia [None]
  - Panic attack [None]
  - Muscle atrophy [None]
  - Paraesthesia [None]
  - Bedridden [None]
  - Postmortem blood drug level abnormal [None]
  - Fear [None]
  - Dizziness [None]
  - Fatigue [None]
  - Blood alcohol increased [None]
  - Genital disorder male [None]
  - Depression [None]
  - Feeling abnormal [None]
  - Asthenia [None]
  - Completed suicide [None]
  - Dysuria [None]
  - Hypogonadism [None]
  - Prostatitis [None]
  - Cognitive disorder [None]
  - Sexual dysfunction [None]
  - Personality change [None]
  - Perineal disorder [None]
  - Social avoidant behaviour [None]
  - Muscle spasms [None]
  - Penile size reduced [None]
  - Loss of libido [None]
  - Burning sensation [None]
  - Hypoaesthesia [None]
  - Vertigo [None]
  - Confusional state [None]
  - Tremor [None]
  - Anger [None]
  - Asphyxia [None]
  - Impaired work ability [None]

NARRATIVE: CASE EVENT DATE: 20140908
